FAERS Safety Report 5410106-6 (Version None)
Quarter: 2007Q3

REPORT INFORMATION
  Report Type: 
  Country: None (occurrence: None)
  Receive Date: 20070713
  Receipt Date: 20070402
  Transmission Date: 20080115
  Serious: No
  Sender: FDA-Public Use
  Company Number: 2007SP001179

PATIENT
  Age: 85 Year
  Sex: Female
  Weight: 61.2356 kg

DRUGS (4)
  1. LUNESTA [Suspect]
     Indication: SLEEP DISORDER
     Dosage: 2 MG;HS;ORAL
     Route: 048
     Dates: start: 20070330
  2. METOPROLOL SUCCINATE [Concomitant]
  3. ADVAIR DISKUS 100/50 [Concomitant]
  4. TIOTROPIUM BROMIDE [Concomitant]

REACTIONS (3)
  - DRUG INEFFECTIVE [None]
  - INSOMNIA [None]
  - SOMNOLENCE [None]
